FAERS Safety Report 21960010 (Version 5)
Quarter: 2023Q1

REPORT INFORMATION
  Report Type: Spontaneous
  Country: CA (occurrence: CA)
  Receive Date: 20230206
  Receipt Date: 20230324
  Transmission Date: 20230417
  Serious: Yes (Other)
  Sender: FDA-Public Use
  Company Number: CA-CELLTRION INC.-2023CA002703

PATIENT

DRUGS (10)
  1. INFLECTRA [Suspect]
     Active Substance: INFLIXIMAB-DYYB
     Indication: Colitis ulcerative
     Dosage: 10 MG/KG,WEEK 2, 6 FOR INDUCTION AT 10MG/KG, THEN 5 MG/KG. WEEK 0 AT HOSPITAL
     Route: 042
     Dates: start: 20230126
  2. INFLECTRA [Suspect]
     Active Substance: INFLIXIMAB-DYYB
     Dosage: 10 MG/KG, 580MG (10MG/KG FOR INFUSION THEN 5MG/KG MAINTENANCE) INDUCTION W2 (W0, W2, W6 THEN Q8W)
     Route: 042
     Dates: start: 20230215
  3. INFLECTRA [Suspect]
     Active Substance: INFLIXIMAB-DYYB
     Dosage: 600.78 MG, EVERY 4 WEEKS
     Route: 042
     Dates: start: 20230314
  4. FOLIC ACID [Concomitant]
     Active Substance: FOLIC ACID
     Dosage: UNK
  5. METHOTREXATE [Concomitant]
     Active Substance: METHOTREXATE
     Dosage: UNK
  6. METHOTREXATE [Concomitant]
     Active Substance: METHOTREXATE
     Dosage: 25 MG, WEEKLY
     Dates: start: 20230131
  7. MULTIVIT [ASCORBIC ACID;NICOTINAMIDE;RETINOL;VITAMIN B1 NOS;VITAMIN D [Concomitant]
     Dosage: UNK
  8. VITAMIN C [Concomitant]
     Active Substance: ASCORBIC ACID
     Dosage: UNK
  9. VIT D [VITAMIN D NOS] [Concomitant]
     Dosage: UNK
  10. VITAMIN B-COMPLEX [Concomitant]
     Active Substance: DEXPANTHENOL\NIACINAMIDE\PYRIDOXINE HYDROCHLORIDE\RIBOFLAVIN 5^-PHOSPHATE SODIUM\THIAMINE HYDROCHLOR
     Dosage: UNK

REACTIONS (6)
  - Rectal haemorrhage [Recovering/Resolving]
  - Polymerase chain reaction positive [Not Recovered/Not Resolved]
  - Pyrexia [Unknown]
  - Blood pressure diastolic decreased [Not Recovered/Not Resolved]
  - Off label use [Unknown]
  - Off label use [Unknown]

NARRATIVE: CASE EVENT DATE: 20230126
